FAERS Safety Report 5811476-7 (Version None)
Quarter: 2008Q3

REPORT INFORMATION
  Report Type: 
  Country: None (occurrence: None)
  Receive Date: 20080716
  Receipt Date: 20080710
  Transmission Date: 20090109
  Serious: Yes (Life-Threatening, Hospitalization)
  Sender: FDA-Public Use
  Company Number: US-BAYER-US-2006-021840

PATIENT
  Age: 77 Year
  Sex: Male

DRUGS (29)
  1. CAMPATH [Suspect]
     Indication: CHRONIC LYMPHOCYTIC LEUKAEMIA
     Dosage: UNIT DOSE: 30 MG
     Route: 058
     Dates: start: 20060313, end: 20060317
  2. CAMPATH [Suspect]
     Dosage: UNIT DOSE: 30 MG
     Route: 058
     Dates: start: 20060724, end: 20060728
  3. CAMPATH [Suspect]
     Dosage: UNIT DOSE: 30 MG
     Route: 058
     Dates: start: 20060605, end: 20060605
  4. CAMPATH [Suspect]
     Dosage: UNIT DOSE: 30 MG
     Route: 058
     Dates: start: 20060501, end: 20060505
  5. CAMPATH [Suspect]
     Dosage: UNIT DOSE: 30 MG
     Route: 058
     Dates: start: 20060627, end: 20060630
  6. CAMPATH [Suspect]
     Dosage: UNIT DOSE: 30 MG
     Route: 058
     Dates: start: 20060703, end: 20060703
  7. CAMPATH [Suspect]
     Dosage: UNIT DOSE: 30 MG
     Route: 058
     Dates: start: 20060530, end: 20060602
  8. FLUDARA [Suspect]
     Indication: CHRONIC LYMPHOCYTIC LEUKAEMIA
     Dosage: UNIT DOSE: 20 MG/M2
     Route: 042
     Dates: start: 20060724, end: 20060728
  9. FLUDARA [Suspect]
     Dosage: UNIT DOSE: 20 MG/M2
     Route: 042
     Dates: start: 20060703, end: 20060703
  10. FLUDARA [Suspect]
     Dosage: UNIT DOSE: 20 MG/M2
     Route: 042
     Dates: start: 20060313, end: 20060317
  11. FLUDARA [Suspect]
     Dosage: UNIT DOSE: 20 MG/M2
     Route: 042
     Dates: start: 20060530, end: 20060602
  12. FLUDARA [Suspect]
     Dosage: UNIT DOSE: 20 MG/M2
     Route: 042
     Dates: start: 20060501, end: 20060505
  13. FLUDARA [Suspect]
     Dosage: UNIT DOSE: 20 MG/M2
     Route: 042
     Dates: start: 20060605, end: 20060605
  14. FLUDARA [Suspect]
     Dosage: UNIT DOSE: 20 MG/M2
     Route: 042
     Dates: start: 20060627, end: 20060630
  15. SLOW-MAG [Concomitant]
     Indication: HYPOMAGNESAEMIA
     Route: 048
     Dates: start: 20060725, end: 20060803
  16. DIPHENHYDRAMINE HYDROCHLORIDE [Concomitant]
     Indication: PREMEDICATION
     Route: 048
     Dates: start: 20060724, end: 20060728
  17. ACETAMINOPHEN [Concomitant]
     Indication: PREMEDICATION
     Route: 048
     Dates: start: 20060724, end: 20060728
  18. EPOETIN ALFA [Concomitant]
     Indication: ANAEMIA
     Dosage: UNIT DOSE: 60000 IU
     Route: 058
     Dates: start: 20060728
  19. RED BLOOD CELLS [Concomitant]
     Indication: ANAEMIA
     Route: 042
     Dates: start: 20060322, end: 20060322
  20. RED BLOOD CELLS [Concomitant]
     Route: 042
     Dates: start: 20060403, end: 20060404
  21. RED BLOOD CELLS [Concomitant]
     Route: 042
     Dates: start: 20060413, end: 20060413
  22. RED BLOOD CELLS [Concomitant]
     Route: 042
     Dates: start: 20060712, end: 20060713
  23. FOLIC ACID [Concomitant]
     Indication: SUPPLEMENTATION THERAPY
     Route: 048
     Dates: start: 20051001
  24. M.V.I. [Concomitant]
     Indication: VITAMIN SUPPLEMENTATION
     Route: 048
     Dates: start: 20051001
  25. TERAZOSIN HYDROCHLORIDE [Concomitant]
     Indication: BENIGN PROSTATIC HYPERPLASIA
     Dosage: UNIT DOSE: 4 MG
     Route: 048
     Dates: start: 20050401
  26. SULFAMETHOXAZOLE AND TRIMETHOPRIM [Concomitant]
     Indication: ANTIFUNGAL PROPHYLAXIS
     Route: 048
     Dates: start: 20060427
  27. PREDNISONE TAB [Concomitant]
     Indication: AUTOIMMUNE THROMBOCYTOPENIA
     Dosage: UNIT DOSE: 10 MG
     Route: 048
     Dates: start: 20060516
  28. FAMCICLOVIR [Concomitant]
     Indication: ANTIVIRAL PROPHYLAXIS
     Dosage: UNIT DOSE: 250 MG
     Route: 048
     Dates: start: 20060519
  29. OXYCODONE W/PARACETAMOL [Concomitant]
     Indication: BACK PAIN
     Route: 048
     Dates: start: 20060522

REACTIONS (4)
  - BACTERAEMIA [None]
  - HYPONATRAEMIA [None]
  - RENAL FAILURE [None]
  - URINARY TRACT INFECTION [None]
